FAERS Safety Report 12336356 (Version 1)
Quarter: 2016Q2

REPORT INFORMATION
  Report Type: Spontaneous
  Country: US (occurrence: None)
  Receive Date: 20160504
  Receipt Date: 20160504
  Transmission Date: 20160815
  Serious: No
  Sender: FDA-Public Use
  Company Number: None

PATIENT
  Age: 29 Year
  Sex: Female
  Weight: 58.97 kg

DRUGS (2)
  1. TRAZODONE [Suspect]
     Active Substance: TRAZODONE HYDROCHLORIDE
     Indication: SLEEP DISORDER
     Dosage: 30 TABLET(S) AT BEDTIME
     Dates: start: 20160301, end: 20160503
  2. IBUPROFEN / ASPIRIN [Concomitant]

REACTIONS (13)
  - Hyperhidrosis [None]
  - Fatigue [None]
  - Salivary hypersecretion [None]
  - Muscular weakness [None]
  - Astigmatism [None]
  - Nausea [None]
  - Dizziness [None]
  - Retching [None]
  - Vomiting [None]
  - Paraesthesia [None]
  - Paraesthesia oral [None]
  - Vision blurred [None]
  - Eye pain [None]

NARRATIVE: CASE EVENT DATE: 20160502
